FAERS Safety Report 15959459 (Version 1)
Quarter: 2019Q1

REPORT INFORMATION
  Report Type: Spontaneous
  Country: CA (occurrence: CA)
  Receive Date: 20190214
  Receipt Date: 20190214
  Transmission Date: 20190417
  Serious: Yes (Other)
  Sender: FDA-Public Use
  Company Number: CA-TEVA-2019-CA-1012393

PATIENT
  Age: 68 Year
  Sex: Female

DRUGS (14)
  1. DETROL LA [Concomitant]
     Active Substance: TOLTERODINE TARTRATE
     Dosage: 1 DOSAGE FORMS DAILY;
     Route: 048
  2. TECTA [Concomitant]
     Active Substance: PANTOPRAZOLE MAGNESIUM
     Dosage: 2 DOSAGE FORMS DAILY;
     Route: 048
  3. KETOCONAZOLE. [Suspect]
     Active Substance: KETOCONAZOLE
     Indication: PRODUCT USED FOR UNKNOWN INDICATION
     Route: 065
  4. DOMPERIDONE [Concomitant]
     Active Substance: DOMPERIDONE
     Dosage: 3 DOSAGE FORMS DAILY;
     Route: 048
  5. FOSAVANCE [Concomitant]
     Active Substance: ALENDRONATE SODIUM\CHOLECALCIFEROL
     Route: 065
  6. ABILIFY [Suspect]
     Active Substance: ARIPIPRAZOLE
     Indication: PRODUCT USED FOR UNKNOWN INDICATION
     Dosage: 30 MILLIGRAM DAILY;
     Route: 048
  7. ASPIRIN. [Concomitant]
     Active Substance: ASPIRIN
     Dosage: 325 MILLIGRAM DAILY;
     Route: 048
  8. CELEBREX [Concomitant]
     Active Substance: CELECOXIB
     Dosage: 2 DOSAGE FORMS DAILY;
     Route: 048
  9. ZOPICLONE [Concomitant]
     Active Substance: ZOPICLONE
     Dosage: 1 DOSAGE FORMS DAILY;
     Route: 048
  10. KETOCONAZOLE. [Suspect]
     Active Substance: KETOCONAZOLE
     Route: 065
  11. ACTOS [Concomitant]
     Active Substance: PIOGLITAZONE HYDROCHLORIDE
     Dosage: 1 DOSAGE FORMS DAILY;
     Route: 048
  12. DIVALPROEX [Concomitant]
     Active Substance: DIVALPROEX SODIUM
     Dosage: 1 DOSAGE FORMS DAILY;
     Route: 065
  13. ASPIRIN. [Concomitant]
     Active Substance: ASPIRIN
     Dosage: 1 DOSAGE FORMS DAILY;
     Route: 048
  14. OLMETEC PLUS [Concomitant]
     Active Substance: HYDROCHLOROTHIAZIDE\OLMESARTAN MEDOXOMIL
     Dosage: 1 DOSAGE FORMS DAILY;
     Route: 065

REACTIONS (3)
  - Drooling [Recovered/Resolved]
  - Tardive dyskinesia [Recovered/Resolved]
  - Tremor [Recovered/Resolved]
